FAERS Safety Report 5406220-1 (Version None)
Quarter: 2007Q3

REPORT INFORMATION
  Report Type: 
  Country: None (occurrence: None)
  Receive Date: 20070802
  Receipt Date: 20070802
  Transmission Date: 20080115
  Serious: Yes (Hospitalization)
  Sender: FDA-Public Use
  Company Number: None

PATIENT
  Age: 69 Year
  Sex: Female

DRUGS (8)
  1. ZITHROMAX [Suspect]
     Indication: CARDIAC FAILURE CONGESTIVE
     Dosage: 500 MG ONCE IV
     Route: 042
     Dates: start: 20060602, end: 20060602
  2. COREG [Concomitant]
  3. LASIX [Concomitant]
  4. ASPIRIN [Concomitant]
  5. NORVASC [Concomitant]
  6. SPIRONOLACTONE [Concomitant]
  7. LISINOPRIL [Concomitant]
  8. LEVOTHYROXINE SODIUM [Concomitant]

REACTIONS (1)
  - URTICARIA [None]
